FAERS Safety Report 8648663 (Version 5)
Quarter: 2012Q4

REPORT INFORMATION
  Report Type: Report from Study
  Country: US (occurrence: US)
  Receive Date: 20120703
  Receipt Date: 20121101
  Transmission Date: 20130627
  Serious: Yes (Hospitalization)
  Sender: FDA-Public Use
  Company Number: US-JNJFOC-20120700308

PATIENT
  Age: 12 Year
  Sex: Male
  Weight: 32.2 kg

DRUGS (5)
  1. REMICADE [Suspect]
     Indication: CROHN^S DISEASE
     Route: 042
     Dates: start: 20110527, end: 20111007
  2. PREDNISONE [Concomitant]
  3. BUDESONIDE [Concomitant]
  4. HUMIRA [Concomitant]
     Dates: start: 20111021
  5. 5-ASA [Concomitant]

REACTIONS (1)
  - Crohn^s disease [Recovered/Resolved with Sequelae]
